FAERS Safety Report 24247979 (Version 3)
Quarter: 2024Q4

REPORT INFORMATION
  Report Type: Spontaneous
  Country: CA (occurrence: None)
  Receive Date: 20240826
  Receipt Date: 20241008
  Transmission Date: 20250115
  Serious: Yes (Other)
  Sender: ORION
  Company Number: CA-PFIZER INC-202400239179

PATIENT
  Age: 36 Year
  Sex: Female

DRUGS (17)
  1. METHOTREXATE [Suspect]
     Active Substance: METHOTREXATE
     Indication: Uveitis
     Dates: start: 2012
  2. METHOTREXATE [Suspect]
     Active Substance: METHOTREXATE
     Indication: Retinal vasculitis
     Dosage: (TAPERED DOSE)
  3. METHOTREXATE [Suspect]
     Active Substance: METHOTREXATE
  4. METHOTREXATE [Suspect]
     Active Substance: METHOTREXATE
  5. PREDNISONE [Concomitant]
     Active Substance: PREDNISONE
     Dates: start: 2012
  6. PREDNISONE [Concomitant]
     Active Substance: PREDNISONE
  7. PREDNISONE [Concomitant]
     Active Substance: PREDNISONE
  8. ACTEMRA [Concomitant]
     Active Substance: TOCILIZUMAB
     Dosage: ONGOING
  9. HUMIRA [Concomitant]
     Active Substance: ADALIMUMAB
     Dates: start: 202301, end: 202303
  10. AZATHIOPRINE [Concomitant]
     Active Substance: AZATHIOPRINE
     Dates: start: 202304, end: 202305
  11. CALCIUM [Concomitant]
     Active Substance: CALCIUM
     Dosage: ONGOING
  12. FOLIC ACID [Concomitant]
     Active Substance: FOLIC ACID
     Dosage: 2-3/7, ONGOING
  13. MYCOPHENOLATE MOFETIL [Concomitant]
     Active Substance: MYCOPHENOLATE MOFETIL
     Dates: start: 202202, end: 202208
  14. FISH OIL [Concomitant]
     Active Substance: FISH OIL
  15. TOCILIZUMAB [Concomitant]
     Active Substance: TOCILIZUMAB
     Dates: start: 202305
  16. TOCILIZUMAB [Concomitant]
     Active Substance: TOCILIZUMAB
     Dates: start: 20240605
  17. CHOLECALCIFEROL [Concomitant]
     Active Substance: CHOLECALCIFEROL

REACTIONS (15)
  - Cataract [Unknown]
  - Retinal vasculitis [Unknown]
  - Condition aggravated [Unknown]
  - Uveitis [Unknown]
  - Vision blurred [Unknown]
  - Product use in unapproved indication [Unknown]
  - Anxiety [Not Recovered/Not Resolved]
  - Arthralgia [Recovered/Resolved]
  - Fibromyalgia [Unknown]
  - Influenza [Recovering/Resolving]
  - SARS-CoV-2 test positive [Recovering/Resolving]
  - Back pain [Recovered/Resolved]
  - Spinal pain [Recovered/Resolved]
  - Paraesthesia [Unknown]
  - Dry eye [Unknown]

NARRATIVE: CASE EVENT DATE: 20120101
